FAERS Safety Report 24072222 (Version 1)
Quarter: 2024Q3

REPORT INFORMATION
  Report Type: Spontaneous
  Country: US (occurrence: US)
  Receive Date: 20240710
  Receipt Date: 20240710
  Transmission Date: 20241016
  Serious: Yes (Other)
  Sender: AMGEN
  Company Number: US-AMGEN-USASP2024132890

PATIENT
  Age: 50 Year
  Sex: Female

DRUGS (2)
  1. RIABNI [Suspect]
     Active Substance: RITUXIMAB-ARRX
     Indication: Central nervous system lymphoma
     Dosage: UNK UNK, Q4WK
  2. METHOTREXATE [Concomitant]
     Active Substance: METHOTREXATE
     Indication: Central nervous system lymphoma
     Dosage: UNK UNK, Q4WK

REACTIONS (3)
  - Retinal occlusive vasculitis [Unknown]
  - Cataract subcapsular [Unknown]
  - Off label use [Unknown]
